FAERS Safety Report 4467110-4 (Version None)
Quarter: 2004Q4

REPORT INFORMATION
  Report Type: 
  Country: None (occurrence: None)
  Receive Date: 20041004
  Receipt Date: 20041004
  Transmission Date: 20050328
  Serious: Yes (Other)
  Sender: FDA-Public Use
  Company Number: None

PATIENT
  Age: 59 Year
  Sex: Female
  Weight: 95.709 kg

DRUGS (7)
  1. CARTIA XT [Suspect]
     Indication: BLOOD PRESSURE INCREASED
     Dosage: 180 MG QD PO
     Route: 048
     Dates: start: 20040917
  2. CARTIA XT [Suspect]
     Indication: BLOOD PRESSURE INCREASED
     Dosage: 180 MG QD PO
     Route: 048
     Dates: start: 20040728
  3. PRILOSEC [Concomitant]
  4. FLUOXETINE [Concomitant]
  5. ATROVENT [Concomitant]
  6. DITROPAN [Concomitant]
  7. LIPITOR [Concomitant]

REACTIONS (1)
  - INCREASED TENDENCY TO BRUISE [None]
